FAERS Safety Report 5525308-8 (Version None)
Quarter: 2007Q4

REPORT INFORMATION
  Report Type: 
  Country: None (occurrence: None)
  Receive Date: 20071126
  Receipt Date: 20071001
  Transmission Date: 20080405
  Serious: Yes (Other)
  Sender: FDA-Public Use
  Company Number: US-ASTRAZENECA-2007UW13914

PATIENT
  Age: 45 Year
  Sex: Male
  Weight: 100 kg

DRUGS (8)
  1. SEROQUEL [Suspect]
     Indication: SLEEP DISORDER
     Route: 048
     Dates: start: 19980101
  2. SEROQUEL [Suspect]
     Indication: DEPRESSION
     Route: 048
     Dates: start: 19980101
  3. ZYPREXA [Concomitant]
     Indication: DEPRESSION
     Dates: end: 20040101
  4. RISPERDAL [Concomitant]
  5. GEODON [Concomitant]
  6. LEXAPRO [Concomitant]
  7. XANAX [Concomitant]
  8. TOPAMAX [Concomitant]

REACTIONS (4)
  - BLOOD CHOLESTEROL INCREASED [None]
  - DIABETES MELLITUS [None]
  - DIABETIC KETOACIDOSIS [None]
  - NEUROPATHY [None]
